FAERS Safety Report 19306103 (Version 1)
Quarter: 2021Q2

REPORT INFORMATION
  Report Type: Spontaneous
  Country: US (occurrence: US)
  Receive Date: 20210526
  Receipt Date: 20210526
  Transmission Date: 20210717
  Serious: Yes (Life-Threatening, Hospitalization, Other)
  Sender: FDA-Public Use
  Company Number: US-DRREDDYS-USA/USA/21/0135841

PATIENT
  Age: 64 Year
  Sex: Male

DRUGS (2)
  1. AMIODARONE HYDROCHLORIDE. [Suspect]
     Active Substance: AMIODARONE HYDROCHLORIDE
     Indication: ATRIAL FIBRILLATION
  2. LIDOCAINE. [Concomitant]
     Active Substance: LIDOCAINE
     Indication: VENTRICULAR TACHYCARDIA

REACTIONS (4)
  - Shock [Unknown]
  - Ventricular tachycardia [Recovering/Resolving]
  - Hyperthyroidism [Recovering/Resolving]
  - Thyrotoxic crisis [Recovering/Resolving]
